FAERS Safety Report 5974194-0 (Version None)
Quarter: 2008Q4

REPORT INFORMATION
  Report Type: 
  Country: None (occurrence: None)
  Receive Date: 20081201
  Receipt Date: 20081127
  Transmission Date: 20090506
  Serious: Yes (Death, Hospitalization, Other)
  Sender: FDA-Public Use
  Company Number: FR-PFIZER INC-2008054384

PATIENT
  Sex: Male
  Weight: 66 kg

DRUGS (4)
  1. SU-011,248 [Suspect]
     Indication: THYROID CANCER
     Dates: start: 20080412, end: 20080509
  2. LEVOTHYROXINE SODIUM [Concomitant]
     Dosage: TEXT:50 UG-FREQ:DAILY
     Dates: start: 20060101
  3. FORMOTEROL W/BUDESONIDE [Concomitant]
     Dosage: FREQ:ONE BREATH DAILY
     Dates: start: 19980101
  4. LENOGRASTIM [Concomitant]
     Dosage: FREQ:ONE INJECTION PER DAY
     Route: 058
     Dates: start: 20080607, end: 20080612

REACTIONS (4)
  - ATRIAL FIBRILLATION [None]
  - DISEASE PROGRESSION [None]
  - PERICARDIAL EFFUSION [None]
  - THYROID CANCER [None]
